FAERS Safety Report 14480673 (Version 1)
Quarter: 2018Q1

REPORT INFORMATION
  Report Type: Report from Study
  Country: TW (occurrence: TW)
  Receive Date: 20180202
  Receipt Date: 20180202
  Transmission Date: 20180509
  Serious: Yes (Hospitalization)
  Sender: FDA-Public Use
  Company Number: PHHO2016TW006827

PATIENT
  Age: 9 Year
  Sex: Female
  Weight: 32 kg

DRUGS (13)
  1. BESIX [Concomitant]
     Active Substance: PYRIDOXINE HYDROCHLORIDE
     Indication: SUPPLEMENTATION THERAPY
     Dosage: 50 MG, BID
     Route: 048
     Dates: start: 20080910
  2. KEPPRA [Concomitant]
     Active Substance: LEVETIRACETAM
     Indication: EPILEPSY
     Dosage: 800 MG, BID
     Route: 048
     Dates: start: 20160405, end: 20160505
  3. KEPPRA [Concomitant]
     Active Substance: LEVETIRACETAM
     Dosage: 600 MG, BID
     Route: 048
     Dates: start: 20160511, end: 20161215
  4. KEPPRA [Concomitant]
     Active Substance: LEVETIRACETAM
     Dosage: 900 MG,BID
     Route: 048
     Dates: start: 20161217
  5. DEPAKINE [Suspect]
     Active Substance: VALPROATE SODIUM
     Indication: EPILEPSY
     Dosage: 400 MG, TID
     Route: 048
     Dates: start: 20080910
  6. EVEROLIMUS. [Suspect]
     Active Substance: EVEROLIMUS
     Dosage: 7 NG/ML, (3-7 NG/ML)
     Route: 048
     Dates: start: 20170129
  7. FOLIC ACID. [Concomitant]
     Active Substance: FOLIC ACID
     Indication: SUPPLEMENTATION THERAPY
     Dosage: 5 MG, QD
     Route: 048
     Dates: start: 20140124
  8. EVEROLIMUS. [Suspect]
     Active Substance: EVEROLIMUS
     Dosage: 7 NG/ML, (3-7 NG/ML)
     Route: 048
     Dates: start: 20160511, end: 20161214
  9. METHYCOBAL [Concomitant]
     Active Substance: METHYLCOBALAMIN
     Indication: SUPPLEMENTATION THERAPY
     Dosage: 500 MG, BID
     Route: 048
     Dates: start: 20140124
  10. EVEROLIMUS. [Suspect]
     Active Substance: EVEROLIMUS
     Indication: SEIZURE
     Dosage: 7 NG/ML, (3-7 NG/ML)
     Route: 048
     Dates: start: 20150513, end: 20160423
  11. EVEROLIMUS. [Suspect]
     Active Substance: EVEROLIMUS
     Dosage: 7 NG/ML, (3-7 NG/ML)
     Route: 048
     Dates: start: 20161227, end: 20170107
  12. TEGRETOL [Concomitant]
     Active Substance: CARBAMAZEPINE
     Indication: EPILEPSY
     Dosage: 200 MG AM AND 300 MG PM
     Route: 048
     Dates: start: 20090508
  13. SABRIL [Concomitant]
     Active Substance: VIGABATRIN
     Indication: EPILEPSY
     Dosage: 1250 MG, TID
     Route: 048
     Dates: start: 20081001

REACTIONS (19)
  - Tremor [Recovered/Resolved]
  - Pyrexia [Recovered/Resolved]
  - Cough [Recovered/Resolved]
  - Anaemia [Recovered/Resolved]
  - Hyponatraemia [Recovered/Resolved]
  - Influenza [Recovered/Resolved]
  - Urinary tract infection [Recovered/Resolved]
  - Urinary tract infection [Recovered/Resolved]
  - Thrombocytopenia [Recovered/Resolved]
  - Insomnia [Recovered/Resolved]
  - Pyrexia [Recovered/Resolved]
  - Urine output decreased [Recovered/Resolved]
  - Vomiting [Recovered/Resolved]
  - Appetite disorder [Recovered/Resolved]
  - Hyponatraemia [Recovered/Resolved]
  - Seizure [Recovered/Resolved]
  - Pneumonia [Recovered/Resolved]
  - Pyrexia [Recovered/Resolved]
  - Hypovolaemia [Recovered/Resolved]

NARRATIVE: CASE EVENT DATE: 20160502
